FAERS Safety Report 22289681 (Version 2)
Quarter: 2023Q2

REPORT INFORMATION
  Report Type: Report from Study
  Country: IT (occurrence: IT)
  Receive Date: 20230505
  Receipt Date: 20230517
  Transmission Date: 20230722
  Serious: Yes (Hospitalization)
  Sender: FDA-Public Use
  Company Number: None

PATIENT
  Age: 31 Year
  Sex: Female

DRUGS (6)
  1. EMTRICITABINE\TENOFOVIR DISOPROXIL FUMARATE [Suspect]
     Active Substance: EMTRICITABINE\TENOFOVIR DISOPROXIL FUMARATE
     Indication: Antiviral prophylaxis
     Dosage: 445 MG, QD
     Route: 048
     Dates: start: 20221128, end: 20221202
  2. DARUNAVIR [Suspect]
     Active Substance: DARUNAVIR
     Indication: Antiviral prophylaxis
     Dosage: 800 MG, QD
     Route: 048
     Dates: start: 20221128, end: 20221202
  3. DARUNAVIR [Suspect]
     Active Substance: DARUNAVIR
     Indication: Antiviral prophylaxis
  4. RITONAVIR [Suspect]
     Active Substance: RITONAVIR
     Indication: Antiviral prophylaxis
     Dosage: 100 MG, QD
     Route: 048
     Dates: start: 20221128, end: 20221202
  5. LEVOTHYROXINE SODIUM [Concomitant]
     Active Substance: LEVOTHYROXINE SODIUM
  6. LEVOTHYROXINE SODIUM [Concomitant]
     Active Substance: LEVOTHYROXINE SODIUM

REACTIONS (2)
  - Drug hypersensitivity [Recovered/Resolved]
  - Urticaria [Recovered/Resolved]

NARRATIVE: CASE EVENT DATE: 20221202
